FAERS Safety Report 4989369-7 (Version None)
Quarter: 2006Q2

REPORT INFORMATION
  Report Type: 
  Country: None (occurrence: None)
  Receive Date: 20060426
  Receipt Date: 20060412
  Transmission Date: 20061013
  Serious: Yes (Hospitalization)
  Sender: FDA-Public Use
  Company Number: CERZ-11192

PATIENT
  Age: 57 Year
  Sex: Male
  Weight: 94.1 kg

DRUGS (1)
  1. CEREZYME [Suspect]
     Indication: GAUCHER'S DISEASE
     Dosage: 30 U/KG Q2WKS IV
     Route: 042
     Dates: start: 19970304

REACTIONS (2)
  - AORTIC DILATATION [None]
  - AORTIC VALVE INCOMPETENCE [None]
